FAERS Safety Report 9046411 (Version 1)
Quarter: 2013Q1

REPORT INFORMATION
  Report Type: Spontaneous
  Country: US (occurrence: None)
  Receive Date: 20130128
  Receipt Date: 20130128
  Transmission Date: 20140127
  Serious: Yes (Disabling)
  Sender: FDA-Public Use
  Company Number: None

PATIENT
  Age: 28 Year
  Sex: Female
  Weight: 102.06 kg

DRUGS (2)
  1. ZICAM [Suspect]
     Dates: start: 20040101, end: 20051231
  2. ZICAM [Concomitant]

REACTIONS (1)
  - Anosmia [None]
